FAERS Safety Report 10346156 (Version 1)
Quarter: 2014Q3

REPORT INFORMATION
  Report Type: Other
  Country: GB (occurrence: GB)
  Receive Date: 20140728
  Receipt Date: 20140728
  Transmission Date: 20150326
  Serious: Yes (Hospitalization)
  Sender: FDA-Public Use
  Company Number: GB-PERRIGO-14GB007235

PATIENT

DRUGS (5)
  1. TRASTUZUMAB [Concomitant]
     Active Substance: TRASTUZUMAB
     Indication: PRODUCT USED FOR UNKNOWN INDICATION
     Dosage: FORM: SOLUTION
     Route: 058
     Dates: start: 20130807
  2. HYDROCORTISONE 2MG/ML [Suspect]
     Active Substance: HYDROCORTISONE
     Indication: PRODUCT USED FOR UNKNOWN INDICATION
     Dosage: 100 MG, QD
     Route: 065
     Dates: start: 20130807, end: 20130807
  3. CARBOPLATIN. [Suspect]
     Active Substance: CARBOPLATIN
     Indication: PRODUCT USED FOR UNKNOWN INDICATION
     Dosage: DAILY DOSE: AUC 6, 780 MG
     Route: 065
     Dates: start: 20130807
  4. DEXSOL 0.4MG/ML PL00427/0137 [Suspect]
     Active Substance: DEXAMETHASONE
     Indication: PRODUCT USED FOR UNKNOWN INDICATION
     Dosage: 24 MG, QD
     Route: 065
     Dates: start: 20130808
  5. DOCETAXEL [Suspect]
     Active Substance: DOCETAXEL
     Indication: PRODUCT USED FOR UNKNOWN INDICATION
     Dosage: 130 MG, QD
     Route: 065
     Dates: start: 20130807

REACTIONS (10)
  - Haematocrit decreased [None]
  - Rash [None]
  - Lip swelling [None]
  - Red blood cell count decreased [None]
  - White blood cell count decreased [None]
  - Urinary tract infection [None]
  - Neutropenic sepsis [Recovered/Resolved]
  - Lymphocyte count decreased [None]
  - Monocyte count increased [None]
  - Nausea [None]

NARRATIVE: CASE EVENT DATE: 20130814
